FAERS Safety Report 13729624 (Version 1)
Quarter: 2017Q3

REPORT INFORMATION
  Report Type: Spontaneous
  Country: PT (occurrence: PT)
  Receive Date: 20170707
  Receipt Date: 20170707
  Transmission Date: 20171127
  Serious: Yes (Hospitalization, Other)
  Sender: FDA-Public Use
  Company Number: PT-ALEMBIC PHARMACUETICALS LIMITED-2017SCAL000578

PATIENT

DRUGS (1)
  1. MODAFINIL. [Suspect]
     Active Substance: MODAFINIL
     Indication: SCHIZOPHRENIA
     Dosage: 100 MG, UNK
     Route: 065

REACTIONS (2)
  - Product use in unapproved indication [Unknown]
  - Renal impairment [Unknown]
